FAERS Safety Report 18103127 (Version 1)
Quarter: 2020Q3

REPORT INFORMATION
  Report Type: Spontaneous
  Country: US (occurrence: US)
  Receive Date: 20200731
  Receipt Date: 20200731
  Transmission Date: 20201103
  Serious: Yes (Death, Life-Threatening, Hospitalization)
  Sender: FDA-Public Use
  Company Number: None

PATIENT
  Age: 74 Year
  Sex: Female
  Weight: 44.1 kg

DRUGS (2)
  1. ALPELISIB [Concomitant]
     Active Substance: ALPELISIB
     Dates: start: 20191015, end: 20200430
  2. ALPELISIB [Suspect]
     Active Substance: ALPELISIB

REACTIONS (7)
  - Colitis [None]
  - Respiratory failure [None]
  - Gastrointestinal wall thickening [None]
  - Pneumocystis jirovecii pneumonia [None]
  - Opportunistic infection [None]
  - Immunosuppression [None]
  - SARS-CoV-2 test negative [None]

NARRATIVE: CASE EVENT DATE: 20200702
